FAERS Safety Report 4575667-8 (Version None)
Quarter: 2005Q1

REPORT INFORMATION
  Report Type: 
  Country: None (occurrence: None)
  Receive Date: 20050127
  Receipt Date: 20041020
  Transmission Date: 20050727
  Serious: No
  Sender: FDA-Public Use
  Company Number: USA041081814

PATIENT
  Age: 23 Year
  Sex: Female

DRUGS (4)
  1. STRATTERA [Suspect]
     Indication: ATTENTION DEFICIT/HYPERACTIVITY DISORDER
     Dosage: 60 MG
     Dates: start: 20040501
  2. ALBUTEROL [Concomitant]
  3. AZMACORT [Concomitant]
  4. AVALIDE [Concomitant]

REACTIONS (3)
  - ANXIETY [None]
  - FATIGUE [None]
  - NAUSEA [None]
